FAERS Safety Report 14293002 (Version 5)
Quarter: 2018Q3

REPORT INFORMATION
  Report Type: Spontaneous
  Country: GB (occurrence: GB)
  Receive Date: 20171215
  Receipt Date: 20180820
  Transmission Date: 20181010
  Serious: Yes (Other)
  Sender: FDA-Public Use
  Company Number: PHHY2017GB186430

PATIENT
  Sex: Female

DRUGS (3)
  1. IRBESARTAN. [Suspect]
     Active Substance: IRBESARTAN
     Indication: HYPERTENSION
     Dosage: UNK, IN THE MORNING (TOOK 3 MS TABLETS)
     Route: 048
  2. MOTENS [Concomitant]
     Active Substance: LACIDIPINE
     Indication: PRODUCT USE IN UNAPPROVED INDICATION
     Dosage: UNK
     Route: 065
  3. IRBESARTAN. [Suspect]
     Active Substance: IRBESARTAN
     Dosage: 300 MG, QD (TOOK 2 TABLETS OF 150MG) ((STRENGTH: 150 MG))
     Route: 065

REACTIONS (5)
  - Wrong drug administered [Unknown]
  - Arrhythmia [Unknown]
  - Drug dose omission [Unknown]
  - Product physical issue [Unknown]
  - Heart rate irregular [Unknown]

NARRATIVE: CASE EVENT DATE: 20171113
